FAERS Safety Report 23420831 (Version 1)
Quarter: 2024Q1

REPORT INFORMATION
  Report Type: Spontaneous
  Country: GB (occurrence: GB)
  Receive Date: 20240119
  Receipt Date: 20240119
  Transmission Date: 20240410
  Serious: Yes (Hospitalization, Other)
  Sender: FDA-Public Use
  Company Number: GB-ABBVIE-5591338

PATIENT
  Age: 57 Year
  Sex: Male
  Weight: 91 kg

DRUGS (2)
  1. BOTOX [Suspect]
     Active Substance: ONABOTULINUMTOXINA
     Indication: Hypertonic bladder
     Dosage: TIME INTERVAL: AS NECESSARY
     Route: 065
     Dates: start: 20240102, end: 20240102
  2. TOLTERODINE [Concomitant]
     Active Substance: TOLTERODINE
     Indication: Bladder disorder
     Route: 065
     Dates: end: 202401

REACTIONS (5)
  - Thrombotic stroke [Unknown]
  - Fall [Unknown]
  - Asthenia [Not Recovered/Not Resolved]
  - Speech disorder [Not Recovered/Not Resolved]
  - Therapeutic response shortened [Not Recovered/Not Resolved]

NARRATIVE: CASE EVENT DATE: 20240101
